FAERS Safety Report 19005473 (Version 6)
Quarter: 2021Q2

REPORT INFORMATION
  Report Type: Report from Study
  Country: US (occurrence: US)
  Receive Date: 20210313
  Receipt Date: 20210626
  Transmission Date: 20210717
  Serious: Yes (Other)
  Sender: FDA-Public Use
  Company Number: NVSC2021US053730

PATIENT
  Sex: Male

DRUGS (2)
  1. ENTRESTO [Suspect]
     Active Substance: SACUBITRIL\VALSARTAN
     Indication: PRODUCT USED FOR UNKNOWN INDICATION
  2. ENTRESTO [Suspect]
     Active Substance: SACUBITRIL\VALSARTAN
     Indication: CARDIAC FAILURE CHRONIC
     Dosage: UNK
     Route: 065

REACTIONS (11)
  - Renal disorder [Recovering/Resolving]
  - Muscular weakness [Recovering/Resolving]
  - Dizziness [Unknown]
  - Weight decreased [Recovering/Resolving]
  - Pain [Unknown]
  - Neoplasm malignant [Unknown]
  - Taste disorder [Unknown]
  - Dysstasia [Recovering/Resolving]
  - Ageusia [Recovering/Resolving]
  - Asthenia [Recovering/Resolving]
  - Nasopharyngitis [Unknown]

NARRATIVE: CASE EVENT DATE: 2020
